FAERS Safety Report 8015501-7 (Version None)
Quarter: 2011Q4

REPORT INFORMATION
  Report Type: 
  Country: None (occurrence: None)
  Receive Date: 20111227
  Receipt Date: 20111227
  Transmission Date: 20120403
  Serious: Yes (Life-Threatening, Hospitalization)
  Sender: FDA-Public Use
  Company Number: None

PATIENT
  Age: 63 Year
  Sex: Male

DRUGS (1)
  1. HEPARIN [Suspect]
     Dosage: 5000 UNITS BID SQ
     Route: 058

REACTIONS (4)
  - HEPARIN-INDUCED THROMBOCYTOPENIA [None]
  - CIRRHOSIS ALCOHOLIC [None]
  - HAEMORRHAGE [None]
  - RENAL FAILURE CHRONIC [None]
